FAERS Safety Report 8298114-1 (Version None)
Quarter: 2012Q2

REPORT INFORMATION
  Report Type: 
  Country: None (occurrence: None)
  Receive Date: 20120419
  Receipt Date: 20120413
  Transmission Date: 20120825
  Serious: Yes (Hospitalization)
  Sender: FDA-Public Use
  Company Number: US-AMGEN-KDL392047

PATIENT
  Age: 63 Year
  Sex: Female
  Weight: 138.9 kg

DRUGS (16)
  1. NPLATE [Suspect]
     Dosage: 60 MUG, UNK
     Dates: start: 20080701
  2. DIOVAN [Concomitant]
     Dosage: UNK
  3. METFORMIN HCL [Concomitant]
     Dosage: 1000 MG, BID
     Route: 048
  4. NPLATE [Suspect]
     Dosage: 560 MUG, QWK
     Route: 042
     Dates: start: 20090507
  5. HYDROCHLOROTHIAZIDE [Concomitant]
     Dosage: 25 MG, QD
     Route: 048
  6. NPLATE [Suspect]
     Indication: IDIOPATHIC THROMBOCYTOPENIC PURPURA
     Dosage: 60 MUG, Q2WK
     Dates: start: 20120103
  7. NPLATE [Suspect]
     Dosage: 700 MUG, QWK
     Route: 042
     Dates: start: 20090806
  8. NPLATE [Suspect]
     Dosage: 850 MUG, QWK
     Route: 042
     Dates: start: 20090820
  9. GLYBURIDE AND METFORMIN HYDROCHLORIDE [Concomitant]
     Dosage: UNK
  10. NPLATE [Suspect]
     Dosage: 200 MUG, QWK
     Dates: start: 20100317
  11. SYNTHROID [Concomitant]
     Dosage: UNK
  12. HUMALOG [Concomitant]
     Dosage: UNK
  13. LANTUS [Concomitant]
     Dosage: 75 IU, UNK
  14. NPLATE [Suspect]
     Dosage: 990 MUG, QWK
     Route: 042
     Dates: start: 20090917
  15. EFFEXOR [Concomitant]
     Dosage: 37.5 MG, BID
     Route: 048
  16. BENICAR [Concomitant]
     Dosage: 10 MG, QD
     Route: 048

REACTIONS (7)
  - DYSGEUSIA [None]
  - HEART RATE INCREASED [None]
  - DYSPNOEA [None]
  - HYPOGEUSIA [None]
  - MALAISE [None]
  - MULTIPLE ALLERGIES [None]
  - PULMONARY EMBOLISM [None]
